FAERS Safety Report 16446516 (Version 3)
Quarter: 2019Q3

REPORT INFORMATION
  Report Type: Spontaneous
  Country: FR (occurrence: FR)
  Receive Date: 20190618
  Receipt Date: 20190904
  Transmission Date: 20191004
  Serious: Yes (Life-Threatening, Hospitalization, Other)
  Sender: FDA-Public Use
  Company Number: FR-PFIZER INC-2019255515

PATIENT
  Age: 54 Year
  Sex: Male
  Weight: 87 kg

DRUGS (9)
  1. SOLUPRED [METHYLPREDNISOLONE] [Concomitant]
     Indication: BRAIN OEDEMA
     Dosage: 20 MG, DAILY
     Route: 048
     Dates: start: 2016
  2. LORVIQUA (LORLATINIB) [Suspect]
     Active Substance: LORLATINIB
     Indication: LUNG ADENOCARCINOMA
     Dosage: 100 MG (4 TABLETS OF 25 MG), DAILY
     Route: 048
     Dates: start: 20181214
  3. LORVIQUA (LORLATINIB) [Suspect]
     Active Substance: LORLATINIB
     Dosage: UNK
     Dates: start: 20190404, end: 20190416
  4. LORVIQUA (LORLATINIB) [Suspect]
     Active Substance: LORLATINIB
     Dosage: 75 MG (3 TABLETS OF 25 MG), DAILY
     Dates: start: 20190421, end: 20190511
  5. LORVIQUA (LORLATINIB) [Suspect]
     Active Substance: LORLATINIB
     Dosage: 25 MG, 3X/DAY WITH 5 DAYS OFF EVERY 19 DAYS
     Dates: start: 20190614, end: 20190820
  6. KEPPRA [Concomitant]
     Active Substance: LEVETIRACETAM
     Indication: EPILEPSY
     Dosage: 2 DF, 2X/DAY
     Route: 048
     Dates: start: 2016
  7. LORVIQUA (LORLATINIB) [Suspect]
     Active Substance: LORLATINIB
     Dosage: UNK
     Dates: start: 20190307, end: 20190401
  8. LORVIQUA (LORLATINIB) [Suspect]
     Active Substance: LORLATINIB
     Dosage: 25 MG, 3X/DAY CONTINUOUS
     Dates: start: 201908
  9. LORVIQUA (LORLATINIB) [Suspect]
     Active Substance: LORLATINIB
     Dosage: 75 MG (3 TABLETS OF 25 MG), DAILY
     Dates: start: 20190517, end: 20190609

REACTIONS (3)
  - Enteritis [Recovering/Resolving]
  - Hypovolaemic shock [Unknown]
  - Diarrhoea [Recovering/Resolving]

NARRATIVE: CASE EVENT DATE: 20190124
